FAERS Safety Report 6448806-1 (Version None)
Quarter: 2009Q4

REPORT INFORMATION
  Report Type: 
  Country: None (occurrence: None)
  Receive Date: 20091120
  Receipt Date: 20091111
  Transmission Date: 20100525
  Serious: Yes (Other)
  Sender: FDA-Public Use
  Company Number: PHHY2009AU43086

PATIENT
  Sex: Female

DRUGS (1)
  1. ACLASTA [Suspect]
     Route: 042

REACTIONS (4)
  - INFUSION SITE REACTION [None]
  - MOUTH ULCERATION [None]
  - RASH [None]
  - SWELLING FACE [None]
